FAERS Safety Report 5871752-9 (Version None)
Quarter: 2008Q3

REPORT INFORMATION
  Report Type: 
  Country: None (occurrence: None)
  Receive Date: 20080905
  Receipt Date: 20080902
  Transmission Date: 20090109
  Serious: Yes (Other)
  Sender: FDA-Public Use
  Company Number: JP-BRISTOL-MYERS SQUIBB COMPANY-14292304

PATIENT
  Age: 78 Year
  Sex: Male

DRUGS (2)
  1. PARAPLATIN [Suspect]
     Indication: SMALL CELL LUNG CANCER EXTENSIVE STAGE
     Route: 041
     Dates: start: 20080205
  2. CAMPTOSAR [Suspect]
     Indication: SMALL CELL LUNG CANCER EXTENSIVE STAGE
     Route: 042
     Dates: start: 20080205

REACTIONS (3)
  - CYTOMEGALOVIRUS ENTEROCOLITIS [None]
  - ILEUS PARALYTIC [None]
  - NEUTROPENIA [None]
